FAERS Safety Report 5036051-6 (Version None)
Quarter: 2006Q2

REPORT INFORMATION
  Report Type: 
  Country: None (occurrence: None)
  Receive Date: 20060526
  Receipt Date: 20060404
  Transmission Date: 20061013
  Serious: Yes (Hospitalization, Other)
  Sender: FDA-Public Use
  Company Number: WAES  0604USA00556

PATIENT
  Sex: Female

DRUGS (1)
  1. VYTORIN [Suspect]
     Dosage: 10-40 MG DAILY PO
     Route: 048
     Dates: start: 20060301, end: 20060331

REACTIONS (1)
  - RHABDOMYOLYSIS [None]
